FAERS Safety Report 6175359-8 (Version None)
Quarter: 2009Q2

REPORT INFORMATION
  Report Type: 
  Country: None (occurrence: None)
  Receive Date: 20090429
  Receipt Date: 20090422
  Transmission Date: 20091009
  Serious: Yes (Other)
  Sender: FDA-Public Use
  Company Number: 2008SP011278

PATIENT
  Age: 8 Year
  Sex: Female

DRUGS (1)
  1. DR. SCHOLL'S CLEAR AWAY WART REMOVER [Suspect]
     Indication: DRUG USE FOR UNKNOWN INDICATION
     Dosage: ONCE; TOP
     Route: 061
     Dates: start: 20080302, end: 20080302

REACTIONS (8)
  - ANAPHYLACTIC REACTION [None]
  - FALL [None]
  - HEAD INJURY [None]
  - LOSS OF CONSCIOUSNESS [None]
  - PROTEIN URINE PRESENT [None]
  - SYNCOPE [None]
  - TREMOR [None]
  - WHITE BLOOD CELLS URINE POSITIVE [None]
